FAERS Safety Report 7530597-4 (Version None)
Quarter: 2011Q2

REPORT INFORMATION
  Report Type: 
  Country: None (occurrence: None)
  Receive Date: 20110607
  Receipt Date: 20110524
  Transmission Date: 20111010
  Serious: No
  Sender: FDA-Public Use
  Company Number: US-B.I. PHARMACEUTICALS,INC./RIDGEFIELD-2011-BP-10543BP

PATIENT
  Sex: Female

DRUGS (2)
  1. MULTAQ [Concomitant]
     Indication: CARDIAC DISORDER
     Route: 048
  2. PRADAXA [Suspect]
     Indication: CARDIAC ASSISTANCE DEVICE USER
     Dosage: 300 MG
     Route: 048
     Dates: start: 20110321

REACTIONS (1)
  - DIZZINESS [None]
